FAERS Safety Report 9565613 (Version 1)
Quarter: 2013Q3

REPORT INFORMATION
  Report Type: Spontaneous
  Country: US (occurrence: US)
  Receive Date: 20130930
  Receipt Date: 20130930
  Transmission Date: 20140515
  Serious: No
  Sender: FDA-Public Use
  Company Number: US-JNJFOC-20130914152

PATIENT
  Sex: Female

DRUGS (1)
  1. SANDOZ FENTANYL TRANSDERMAL SYSTEM [Suspect]
     Indication: PAIN IN JAW
     Route: 062

REACTIONS (8)
  - Product quality issue [Unknown]
  - Product quality issue [Unknown]
  - Hyperhidrosis [Unknown]
  - Constipation [Unknown]
  - Diarrhoea [Unknown]
  - Thinking abnormal [Unknown]
  - Drug ineffective [Unknown]
  - Poor quality drug administered [Unknown]
